FAERS Safety Report 4729886-8 (Version None)
Quarter: 2005Q3

REPORT INFORMATION
  Report Type: 
  Country: None (occurrence: None)
  Receive Date: 20050728
  Receipt Date: 20050712
  Transmission Date: 20060218
  Serious: Yes (Hospitalization)
  Sender: FDA-Public Use
  Company Number: 142661USA

PATIENT
  Age: 49 Year
  Sex: Male

DRUGS (8)
  1. PIMOZIDE [Suspect]
     Dosage: SEE IMAGE
     Route: 048
     Dates: start: 20050224, end: 20050225
  2. PIMOZIDE [Suspect]
     Dosage: SEE IMAGE
     Route: 048
     Dates: start: 20050226, end: 20050301
  3. PIMOZIDE [Suspect]
     Dosage: SEE IMAGE
     Route: 048
     Dates: start: 20050302, end: 20050306
  4. PIMOZIDE [Suspect]
     Dosage: SEE IMAGE
     Route: 048
     Dates: start: 20050307, end: 20050315
  5. PIMOZIDE [Suspect]
     Dosage: SEE IMAGE
     Route: 048
     Dates: start: 20050316, end: 20050326
  6. PIMOZIDE [Suspect]
     Dosage: SEE IMAGE
     Route: 048
     Dates: start: 20050327, end: 20050406
  7. PIMOZIDE [Suspect]
     Dosage: SEE IMAGE
     Route: 048
     Dates: start: 20050407, end: 20050410
  8. PIMOZIDE [Suspect]
     Dosage: SEE IMAGE
     Route: 048
     Dates: start: 20050411, end: 20050415

REACTIONS (3)
  - ANXIETY [None]
  - DRUG INEFFECTIVE [None]
  - RESTLESSNESS [None]
